FAERS Safety Report 11825186 (Version 3)
Quarter: 2015Q4

REPORT INFORMATION
  Report Type: Spontaneous
  Country: CA (occurrence: CA)
  Receive Date: 20151211
  Receipt Date: 20151224
  Transmission Date: 20160305
  Serious: Yes (Hospitalization, Other)
  Sender: FDA-Public Use
  Company Number: CA-ROCHE-1675591

PATIENT
  Age: 68 Year
  Sex: Female

DRUGS (1)
  1. XOLAIR [Suspect]
     Active Substance: OMALIZUMAB
     Indication: ASTHMA
     Route: 058
     Dates: start: 20150114

REACTIONS (11)
  - Cough [Unknown]
  - Respiratory disorder [Unknown]
  - Malaise [Unknown]
  - Temperature intolerance [Unknown]
  - Device malfunction [Unknown]
  - Asthma [Unknown]
  - Urinary tract infection [Unknown]
  - Anaemia [Unknown]
  - Humidity intolerance [Unknown]
  - Incision site abscess [Unknown]
  - Fistula [Unknown]

NARRATIVE: CASE EVENT DATE: 20150731
